FAERS Safety Report 15753974 (Version 1)
Quarter: 2018Q4

REPORT INFORMATION
  Report Type: Spontaneous
  Country: US (occurrence: US)
  Receive Date: 20181222
  Receipt Date: 20181222
  Transmission Date: 20190205
  Serious: Yes (Life-Threatening, Hospitalization)
  Sender: FDA-Public Use
  Company Number: US-MYLANLABS-2018M1095100

PATIENT
  Age: 42 Year
  Sex: Male

DRUGS (3)
  1. TIANEPTINE SODIUM [Interacting]
     Active Substance: TIANEPTINE SODIUM
     Indication: BACK PAIN
     Dosage: ONE SCOOP OF THE POWDER WHEN NEEDED
     Route: 065
  2. TIANEPTINE SODIUM [Interacting]
     Active Substance: TIANEPTINE SODIUM
     Dosage: TAKEN INORDINATELY LARGE AMOUNT (OVERDOSE)
     Route: 065
  3. ALPRAZOLAM. [Suspect]
     Active Substance: ALPRAZOLAM
     Indication: PRODUCT USED FOR UNKNOWN INDICATION
     Route: 065

REACTIONS (4)
  - Unresponsive to stimuli [Recovered/Resolved]
  - Pneumonia aspiration [Recovered/Resolved]
  - Labelled drug-drug interaction medication error [Recovered/Resolved]
  - Respiratory depression [Recovered/Resolved]
